FAERS Safety Report 5153346-6 (Version None)
Quarter: 2006Q4

REPORT INFORMATION
  Report Type: 
  Country: None (occurrence: None)
  Receive Date: 20061117
  Receipt Date: 20061109
  Transmission Date: 20070319
  Serious: Yes (Other)
  Sender: FDA-Public Use
  Company Number: FI-NOVO NORDISK A/S-258558

PATIENT
  Age: 94 Year
  Sex: Female

DRUGS (14)
  1. VAGIFEM [Suspect]
     Indication: DRUG USE FOR UNKNOWN INDICATION
     Dates: start: 20061001, end: 20061001
  2. ATACAND [Concomitant]
     Dosage: 16 MG, QD
     Route: 048
  3. ATRODUAL [Concomitant]
     Dosage: UNK, PRN
  4. ATROVENT COMP [Concomitant]
     Dosage: 40/100 MG ONE SPRAY TWO TIMES WHEN NEEDED
  5. EMCONCOR                           /00802601/ [Concomitant]
     Dosage: 2.5 MG, QD
     Route: 048
  6. FURESIS [Concomitant]
     Dosage: 40 MG, BID
     Route: 048
  7. ISMOX [Concomitant]
     Dosage: 10 MG, BID
     Route: 048
  8. LEVOLAC [Concomitant]
  9. MAREVAN [Concomitant]
     Dosage: 5 MG, UNK
  10. NITROMEX [Concomitant]
     Dosage: UNK, PRN
  11. SERETIDE                           /01420901/ [Concomitant]
     Dosage: UNK, BID
  12. SPARTOCINE                         /00023501/ [Concomitant]
     Dosage: UNK, QD
     Route: 048
  13. THYROXIN [Concomitant]
     Dosage: .025 MG, QD
     Route: 048
  14. ZANIDIP [Concomitant]
     Dosage: 1+A? TABLET
     Route: 048

REACTIONS (2)
  - CHEST PAIN [None]
  - OEDEMA PERIPHERAL [None]
